FAERS Safety Report 18779960 (Version 1)
Quarter: 2021Q1

REPORT INFORMATION
  Report Type: Spontaneous
  Country: US (occurrence: US)
  Receive Date: 20210125
  Receipt Date: 20210125
  Transmission Date: 20210419
  Serious: Yes (Hospitalization, Other)
  Sender: FDA-Public Use
  Company Number: US-SA-2021SA020981

PATIENT
  Age: 55 Year
  Sex: Female

DRUGS (1)
  1. AUBAGIO [Suspect]
     Active Substance: TERIFLUNOMIDE
     Indication: MULTIPLE SCLEROSIS
     Dosage: 14 MG, QD
     Route: 048

REACTIONS (7)
  - Balance disorder [Unknown]
  - Pruritus [Unknown]
  - Type 1 diabetes mellitus [Unknown]
  - Depression [Unknown]
  - Blood glucose increased [Unknown]
  - Weight decreased [Unknown]
  - Erythema [Unknown]

NARRATIVE: CASE EVENT DATE: 20201215
